FAERS Safety Report 21937520 (Version 1)
Quarter: 2023Q1

REPORT INFORMATION
  Report Type: Other
  Country: US (occurrence: None)
  Receive Date: 20230201
  Receipt Date: 20230201
  Transmission Date: 20230417
  Serious: Yes (Death, Other)
  Sender: FDA-Public Use
  Company Number: US-ROCHE-3270212

PATIENT
  Age: 73 Year
  Sex: Male
  Weight: 79.3 kg

DRUGS (23)
  1. AVASTIN [Suspect]
     Active Substance: BEVACIZUMAB
     Indication: Colon cancer
     Dosage: INFUSE 16ML (400MG) INTRAVENOUSLY EVERY 14 DAY(S)
     Route: 042
     Dates: start: 20220815
  2. AVASTIN [Suspect]
     Active Substance: BEVACIZUMAB
     Indication: Metastases to liver
  3. AVASTIN [Suspect]
     Active Substance: BEVACIZUMAB
     Indication: Cholangiocarcinoma
  4. AVASTIN [Suspect]
     Active Substance: BEVACIZUMAB
     Indication: Colorectal cancer metastatic
  5. XELODA [Suspect]
     Active Substance: CAPECITABINE
     Indication: Product used for unknown indication
     Dosage: 1 OF 6 CYCLES STARTED
     Route: 048
     Dates: start: 20210428, end: 20210914
  6. ATROPINE [Concomitant]
     Active Substance: ATROPINE
  7. COMPAZINE [Concomitant]
     Active Substance: PROCHLORPERAZINE MALEATE
  8. ALOXI [Concomitant]
     Active Substance: PALONOSETRON HYDROCHLORIDE
  9. DECADRON [Concomitant]
     Active Substance: DEXAMETHASONE
  10. ZIRABEV [Concomitant]
     Active Substance: BEVACIZUMAB-BVZR
  11. CAMPTOSAR [Concomitant]
     Active Substance: IRINOTECAN HYDROCHLORIDE
  12. WELLCOVORIN [Concomitant]
     Active Substance: LEUCOVORIN CALCIUM
  13. ADRUCIL [Concomitant]
     Active Substance: FLUOROURACIL
  14. SODIUM CHLORIDE [Concomitant]
     Active Substance: SODIUM CHLORIDE
  15. TYLENOL [Concomitant]
     Active Substance: ACETAMINOPHEN
  16. FAMOTIDINE [Concomitant]
     Active Substance: FAMOTIDINE
  17. SOLU-MEDROL [Concomitant]
     Active Substance: METHYLPREDNISOLONE SODIUM SUCCINATE
  18. EPIPEN [Concomitant]
     Active Substance: EPINEPHRINE
  19. NARCAN [Concomitant]
     Active Substance: NALOXONE HYDROCHLORIDE
  20. DEMEROL [Concomitant]
     Active Substance: MEPERIDINE HYDROCHLORIDE
  21. DEXTROSE [Concomitant]
     Active Substance: DEXTROSE
  22. OXALIPLATIN [Concomitant]
     Active Substance: OXALIPLATIN
  23. CATHFLO ACTIVASE [Concomitant]
     Active Substance: ALTEPLASE
     Dosage: 2MG PRN, NON FUNCTIONING PORTS, STARTING WHEN RELEASED FOR 2
     Route: 050

REACTIONS (4)
  - Death [Fatal]
  - Acute myocardial infarction [Unknown]
  - Arteriospasm coronary [Unknown]
  - Drug intolerance [Unknown]

NARRATIVE: CASE EVENT DATE: 20230103
